FAERS Safety Report 9364803 (Version 1)
Quarter: 2013Q2

REPORT INFORMATION
  Report Type: Spontaneous
  Country: US (occurrence: US)
  Receive Date: 20130624
  Receipt Date: 20130624
  Transmission Date: 20140414
  Serious: Yes (Hospitalization, Other)
  Sender: FDA-Public Use
  Company Number: US-ELI_LILLY_AND_COMPANY-US201306005992

PATIENT
  Age: 46 Year
  Sex: Male
  Weight: 88.44 kg

DRUGS (1)
  1. HUMALOG LISPRO [Suspect]

REACTIONS (5)
  - Diabetic ketoacidosis [Recovered/Resolved]
  - Convulsion [Unknown]
  - Blood glucose increased [Unknown]
  - Depressed mood [Unknown]
  - Blood glucose decreased [Unknown]
